FAERS Safety Report 4429460-7 (Version None)
Quarter: 2004Q3

REPORT INFORMATION
  Report Type: 
  Country: None (occurrence: None)
  Receive Date: 20040816
  Receipt Date: 20040803
  Transmission Date: 20050211
  Serious: Yes (Death, Other)
  Sender: FDA-Public Use
  Company Number: 2004053280

PATIENT
  Age: 85 Year
  Sex: Female

DRUGS (15)
  1. LIPITOR [Suspect]
     Indication: ILL-DEFINED DISORDER
     Dosage: 80 MG (80 MG, 1 IN 1 D), ORAL
     Route: 048
  2. CIMETIDINE [Suspect]
     Indication: ILL-DEFINED DISORDER
     Dosage: 12000 MG (600 MG, 2 IN 1 D), ORAL
     Route: 048
  3. ACETAMINOPHEN [Concomitant]
  4. AZITHROMYCIN [Concomitant]
  5. CEFAZOLIN [Concomitant]
  6. CLOXACILLIN (CLOXACILLIN) [Concomitant]
  7. FUROSEMIDE [Concomitant]
  8. MORPHINE SULFATE [Concomitant]
  9. POTASSIUM CHLORIDE [Concomitant]
  10. NITROGLYCERIN [Concomitant]
  11. RANITIDINE [Concomitant]
  12. SALBUTAMOL (SALBUTAMOL) [Concomitant]
  13. TIMOLOL MALEATE [Concomitant]
  14. CODEINE PHOSPHATE AND ACETAMINOPHEN [Concomitant]
  15. ENALAPRIL MALEATE [Concomitant]

REACTIONS (1)
  - RHABDOMYOLYSIS [None]
